FAERS Safety Report 5563002-8 (Version None)
Quarter: 2007Q4

REPORT INFORMATION
  Report Type: 
  Country: None (occurrence: None)
  Receive Date: 20071217
  Receipt Date: 20071204
  Transmission Date: 20080405
  Serious: Yes (Hospitalization)
  Sender: FDA-Public Use
  Company Number: DE-ROCHE-533207

PATIENT
  Age: 31 Year
  Sex: Female
  Weight: 165 kg

DRUGS (3)
  1. PEGASYS [Suspect]
     Route: 058
     Dates: start: 20070214, end: 20071114
  2. COPEGUS [Concomitant]
     Route: 048
     Dates: start: 20070214, end: 20071120
  3. CITALOPRAM [Concomitant]
     Dates: start: 20071010

REACTIONS (5)
  - ASTHENIA [None]
  - DEMYELINATION [None]
  - DYSPNOEA EXERTIONAL [None]
  - NERVOUSNESS [None]
  - SENSATION OF PRESSURE [None]
